FAERS Safety Report 9471402 (Version 1)
Quarter: 2013Q3

REPORT INFORMATION
  Report Type: Spontaneous
  Country: KR (occurrence: None)
  Receive Date: 20130819
  Receipt Date: 20130819
  Transmission Date: 20140515
  Serious: Yes (Hospitalization)
  Sender: FDA-Public Use
  Company Number: ENTC2013-0259

PATIENT
  Age: 66 Year
  Sex: Male

DRUGS (2)
  1. STALEVO (LEVODOPA, CARBIDOPA, ENTACAPONE) [Suspect]
     Indication: PARKINSON^S DISEASE
  2. SINEMET [Concomitant]

REACTIONS (4)
  - Drug ineffective [None]
  - Urinary tract disorder [None]
  - Abdominal pain upper [None]
  - Constipation [None]
